FAERS Safety Report 10213703 (Version 1)
Quarter: 2014Q2

REPORT INFORMATION
  Report Type: Spontaneous
  Country: FR (occurrence: FR)
  Receive Date: 20140603
  Receipt Date: 20140603
  Transmission Date: 20141212
  Serious: Yes (Life-Threatening)
  Sender: FDA-Public Use
  Company Number: FR-SA-2014SA066991

PATIENT
  Age: 67 Year
  Sex: Male

DRUGS (2)
  1. KARDEGIC [Suspect]
     Indication: ISCHAEMIC STROKE
     Route: 048
     Dates: start: 201312
  2. PLAVIX [Suspect]
     Indication: ISCHAEMIC STROKE
     Route: 048
     Dates: start: 201312

REACTIONS (1)
  - Haemoptysis [Recovered/Resolved]
